FAERS Safety Report 18476473 (Version 6)
Quarter: 2021Q2

REPORT INFORMATION
  Report Type: Other
  Country: CZ (occurrence: CZ)
  Receive Date: 20201106
  Receipt Date: 20210601
  Transmission Date: 20210717
  Serious: Yes (Hospitalization, Other)
  Sender: FDA-Public Use
  Company Number: CZ-US-PROVELL PHARMACEUTICALS LLC-9195238

PATIENT
  Age: 96 Year
  Sex: Female

DRUGS (53)
  1. EUTHYROX [Interacting]
     Active Substance: LEVOTHYROXINE SODIUM
     Dosage: DOSAGE WAS ADJUSTED
  2. TEZEO [Interacting]
     Active Substance: TELMISARTAN
     Indication: PRODUCT USED FOR UNKNOWN INDICATION
     Dosage: 80/12.5 MG
     Route: 048
  3. CARDILAN                           /00152401/ [Interacting]
     Active Substance: NICOFURANOSE
     Dosage: DOSE REDUCED
  4. ACIDUM FOLICUM [Interacting]
     Active Substance: FOLIC ACID
     Indication: PRODUCT USED FOR UNKNOWN INDICATION
     Route: 048
  5. PREDNISONE. [Interacting]
     Active Substance: PREDNISONE
     Dosage: DOSE REDUCED
  6. GUTTALAX [SODIUM PICOSULFATE] [Interacting]
     Active Substance: SODIUM PICOSULFATE
     Indication: CONSTIPATION
     Dosage: 10?20 GUTTES
     Route: 065
  7. STILNOX [Interacting]
     Active Substance: ZOLPIDEM TARTRATE
     Indication: DRUG ABUSE
     Dosage: OVERUSED
  8. BETALOC                            /00376902/ [Interacting]
     Active Substance: METOPROLOL TARTRATE
     Dosage: DOSE REDUCED
     Route: 048
  9. MAGNESIUM ASPARTATE [Suspect]
     Active Substance: MAGNESIUM ASPARTATE
     Indication: PRODUCT USED FOR UNKNOWN INDICATION
     Route: 065
  10. CORDARONE [Interacting]
     Active Substance: AMIODARONE HYDROCHLORIDE
     Indication: ATRIAL FIBRILLATION
     Route: 048
  11. AGEN [Interacting]
     Active Substance: AMLODIPINE BESYLATE
     Dosage: DOSE REDUCED
  12. ALPRAZOLAM. [Suspect]
     Active Substance: ALPRAZOLAM
     Indication: PRODUCT USED FOR UNKNOWN INDICATION
     Route: 065
  13. PREGABALIN. [Concomitant]
     Active Substance: PREGABALIN
     Indication: POST HERPETIC NEURALGIA
  14. CORDARONE [Interacting]
     Active Substance: AMIODARONE HYDROCHLORIDE
     Dosage: DOSE REDUCED
  15. ROSUCARD [Interacting]
     Active Substance: ROSUVASTATIN CALCIUM
     Dosage: DOSE REDUCED
  16. GUTTALAX [SODIUM PICOSULFATE] [Interacting]
     Active Substance: SODIUM PICOSULFATE
     Dosage: DOSE REDUCED
  17. HYPNOGEN [Suspect]
     Active Substance: ZOLPIDEM TARTRATE
     Indication: DRUG ABUSE
     Dosage: OVERUSED
  18. DONEPEZIL HYDROCHLORIDE. [Suspect]
     Active Substance: DONEPEZIL HYDROCHLORIDE
     Indication: PRODUCT USED FOR UNKNOWN INDICATION
     Route: 065
  19. EUTHYROX [Interacting]
     Active Substance: LEVOTHYROXINE SODIUM
     Dosage: DOSE REDUCED
  20. TEZEO [Interacting]
     Active Substance: TELMISARTAN
     Dosage: DOSE REDUCED
  21. ROSUCARD [Interacting]
     Active Substance: ROSUVASTATIN CALCIUM
     Indication: PRODUCT USED FOR UNKNOWN INDICATION
     Route: 048
  22. CALCICHEW D3 [Interacting]
     Active Substance: CALCIUM\CHOLECALCIFEROL
     Indication: PRODUCT USED FOR UNKNOWN INDICATION
  23. PANADOL [Interacting]
     Active Substance: ACETAMINOPHEN
     Indication: PAIN
     Dosage: 3?4 TIMES PER DAY,
     Route: 048
     Dates: start: 2015
  24. CONTROLOC [Interacting]
     Active Substance: PANTOPRAZOLE SODIUM
     Indication: NAUSEA
     Dosage: PROLONGED RELEASE TABLET
  25. CONTROLOC [Interacting]
     Active Substance: PANTOPRAZOLE SODIUM
     Dosage: DOSE REDUCED
  26. CALCICHEW D3 [Interacting]
     Active Substance: CALCIUM\CHOLECALCIFEROL
     Dosage: DOSE REDUCED
  27. DUROGESIC [Interacting]
     Active Substance: FENTANYL
     Dosage: DOSE REDUCED
  28. ELIQUIS [Interacting]
     Active Substance: APIXABAN
     Indication: ANTICOAGULANT THERAPY
     Dosage: DOSE REDUCED
     Route: 048
  29. POTASSIUM ASPARTATE [Suspect]
     Active Substance: POTASSIUM ASPARTATE
     Indication: PRODUCT USED FOR UNKNOWN INDICATION
     Route: 065
  30. METHOTREXATE. [Interacting]
     Active Substance: METHOTREXATE
     Indication: RHEUMATOID ARTHRITIS
     Dates: start: 2010
  31. METHOTREXATE. [Interacting]
     Active Substance: METHOTREXATE
     Dosage: DOSE REDUCED
  32. CARDILAN                           /00152401/ [Interacting]
     Active Substance: NICOFURANOSE
     Indication: PRODUCT USED FOR UNKNOWN INDICATION
     Route: 048
  33. CONDROSULF [Interacting]
     Active Substance: SODIUM CHONDROITIN SULFATE
     Indication: RHEUMATOID ARTHRITIS
     Dosage: DOSE REDUCED
  34. DUROGESIC [Interacting]
     Active Substance: FENTANYL
     Indication: POST HERPETIC NEURALGIA
     Dates: start: 2015
  35. NOVALGIN                           /00169801/ [Interacting]
     Active Substance: ACETAMINOPHEN\CAFFEINE\PROPYPHENAZONE
     Indication: HYPERTENSION
     Route: 048
  36. BETALOC                            /00376902/ [Interacting]
     Active Substance: METOPROLOL TARTRATE
     Indication: HYPERTENSION
     Route: 048
  37. NICOFURANOSE. [Suspect]
     Active Substance: NICOFURANOSE
     Indication: ENCEPHALOPATHY
     Route: 048
  38. OMEPRAZOLE. [Suspect]
     Active Substance: OMEPRAZOLE
     Indication: PRODUCT USED FOR UNKNOWN INDICATION
     Route: 065
  39. TRAZODONE [Suspect]
     Active Substance: TRAZODONE HYDROCHLORIDE
     Indication: PRODUCT USED FOR UNKNOWN INDICATION
     Route: 065
  40. BETALOC ZOK [Interacting]
     Active Substance: METOPROLOL SUCCINATE
     Indication: PRODUCT USED FOR UNKNOWN INDICATION
     Dosage: DOSE REDUCED
  41. ACIDUM FOLICUM [Interacting]
     Active Substance: FOLIC ACID
     Dosage: DOSE REDUCED
  42. AGEN [Interacting]
     Active Substance: AMLODIPINE BESYLATE
     Indication: PRODUCT USED FOR UNKNOWN INDICATION
     Route: 048
  43. ORAMELLOX [Interacting]
     Active Substance: MELOXICAM
     Dosage: 15 MG TAKEN APPROX. 3 TIMES PER WEEK
     Route: 048
  44. OXAZEPAM. [Suspect]
     Active Substance: OXAZEPAM
     Indication: DRUG ABUSE
     Dosage: OVERUSED
  45. CAPTOPRIL. [Suspect]
     Active Substance: CAPTOPRIL
     Indication: PRODUCT USED FOR UNKNOWN INDICATION
     Route: 065
  46. RAMIPRIL. [Suspect]
     Active Substance: RAMIPRIL
     Indication: PRODUCT USED FOR UNKNOWN INDICATION
     Route: 065
  47. EUTHYROX [Suspect]
     Active Substance: LEVOTHYROXINE SODIUM
     Indication: AUTOIMMUNE THYROIDITIS
  48. PREDNISONE. [Interacting]
     Active Substance: PREDNISONE
     Indication: STEROID THERAPY
  49. PANADOL [Interacting]
     Active Substance: ACETAMINOPHEN
     Dosage: DOSE REDUCED
  50. ORAMELLOX [Interacting]
     Active Substance: MELOXICAM
     Indication: POST HERPETIC NEURALGIA
     Dates: start: 2015
  51. METAMIZOLE [Interacting]
     Active Substance: METAMIZOLE
     Indication: POST HERPETIC NEURALGIA
     Route: 048
     Dates: start: 2015
  52. IBALGIN [Interacting]
     Active Substance: IBUPROFEN
     Indication: PAIN
  53. TRAMADOL. [Suspect]
     Active Substance: TRAMADOL
     Indication: PRODUCT USED FOR UNKNOWN INDICATION
     Dosage: OVERUSED

REACTIONS (48)
  - Pelvic fracture [Recovered/Resolved]
  - Hypoacusis [Recovered/Resolved]
  - Contusion [Recovered/Resolved]
  - Fracture [Recovered/Resolved]
  - Drug abuse [Recovering/Resolving]
  - Delirium [Recovered/Resolved]
  - Cognitive disorder [Recovered/Resolved]
  - Dizziness [Recovered/Resolved]
  - Deafness [Unknown]
  - Loss of personal independence in daily activities [Recovered/Resolved]
  - Prescription drug used without a prescription [Unknown]
  - Atrial fibrillation [Recovered/Resolved]
  - Nausea [Recovered/Resolved]
  - Dehydration [Recovered/Resolved]
  - Overdose [Recovered/Resolved]
  - Oxygen saturation decreased [Recovered/Resolved]
  - Vertigo [Recovered/Resolved]
  - Hypertension [Recovering/Resolving]
  - Immobile [Recovered/Resolved]
  - Cognitive disorder [Recovered/Resolved]
  - Confusional state [Recovered/Resolved]
  - Affect lability [Recovered/Resolved]
  - Reduced facial expression [Recovered/Resolved]
  - Mobility decreased [Recovered/Resolved]
  - Product use issue [Recovered/Resolved]
  - Hyponatraemia [Recovered/Resolved]
  - Confusional state [Recovering/Resolving]
  - Encephalopathy [Recovering/Resolving]
  - Restlessness [Recovered/Resolved]
  - Fall [Recovering/Resolving]
  - Incorrect dose administered [Recovered/Resolved]
  - Drug interaction [Recovered/Resolved]
  - Listless [Recovering/Resolving]
  - Condition aggravated [Recovered/Resolved]
  - Sleep disorder [Recovering/Resolving]
  - Urinary retention [Recovered/Resolved]
  - Hypokalaemia [Recovered/Resolved]
  - Liver function test increased [Recovered/Resolved]
  - Head discomfort [Recovered/Resolved]
  - Concomitant disease aggravated [Recovering/Resolving]
  - General physical health deterioration [Recovering/Resolving]
  - Poor quality sleep [Recovered/Resolved]
  - Discomfort [Recovered/Resolved]
  - Intentional product misuse [Unknown]
  - Foreign body [Recovered/Resolved]
  - Apathy [Recovering/Resolving]
  - Anxiety [Recovered/Resolved]
  - Medication error [Recovered/Resolved]

NARRATIVE: CASE EVENT DATE: 2018
